FAERS Safety Report 7988150-4 (Version None)
Quarter: 2011Q4

REPORT INFORMATION
  Report Type: 
  Country: None (occurrence: None)
  Receive Date: 20111216
  Receipt Date: 20110705
  Transmission Date: 20120403
  Serious: Yes (Other)
  Sender: FDA-Public Use
  Company Number: US-BRISTOL-MYERS SQUIBB COMPANY-15809767

PATIENT
  Age: 18 Year
  Sex: Female

DRUGS (3)
  1. ABILIFY [Suspect]
     Indication: IRRITABILITY
     Dosage: NOT CONSISTENTLY
  2. ABILIFY [Suspect]
     Indication: MILD MENTAL RETARDATION
     Dosage: NOT CONSISTENTLY
  3. ABILIFY [Suspect]
     Indication: AFFECTIVE DISORDER
     Dosage: NOT CONSISTENTLY

REACTIONS (1)
  - GLUCOSE TOLERANCE IMPAIRED [None]
